FAERS Safety Report 5152269-6 (Version None)
Quarter: 2006Q4

REPORT INFORMATION
  Report Type: 
  Country: None (occurrence: None)
  Receive Date: 20061109
  Receipt Date: 20061027
  Transmission Date: 20070319
  Serious: Yes (Other)
  Sender: FDA-Public Use
  Company Number: 2006133472

PATIENT
  Sex: Female

DRUGS (1)
  1. PHENYTOIN [Suspect]
     Dosage: (450 MG), INTRAVENOUS
     Route: 042
     Dates: start: 20060731

REACTIONS (2)
  - MALAISE [None]
  - TREMOR [None]
